FAERS Safety Report 16292121 (Version 1)
Quarter: 2019Q2

REPORT INFORMATION
  Report Type: Spontaneous
  Country: GB (occurrence: GB)
  Receive Date: 20190509
  Receipt Date: 20190509
  Transmission Date: 20190711
  Serious: Yes (Hospitalization)
  Sender: FDA-Public Use
  Company Number: GB-TEVA-2019-GB-1046232

PATIENT
  Age: 92 Year
  Sex: Female
  Weight: 64.35 kg

DRUGS (9)
  1. MICONAZOLE. [Concomitant]
     Active Substance: MICONAZOLE
  2. RANITIDINE. [Concomitant]
     Active Substance: RANITIDINE
  3. TEMAZEPAM. [Suspect]
     Active Substance: TEMAZEPAM
     Indication: INSOMNIA
     Dosage: AT NIGHT
     Route: 048
     Dates: start: 20180901, end: 20190403
  4. TRIMETHOPRIM. [Concomitant]
     Active Substance: TRIMETHOPRIM
  5. OMEPRAZOLE. [Concomitant]
     Active Substance: OMEPRAZOLE
  6. BUMETANIDE. [Concomitant]
     Active Substance: BUMETANIDE
  7. DOCUSATE SODIUM. [Concomitant]
     Active Substance: DOCUSATE SODIUM
  8. OXYCODONE [Concomitant]
     Active Substance: OXYCODONE
  9. APIXABAN [Concomitant]
     Active Substance: APIXABAN

REACTIONS (1)
  - Fall [Recovered/Resolved]

NARRATIVE: CASE EVENT DATE: 20190403
